FAERS Safety Report 16335880 (Version 1)
Quarter: 2019Q2

REPORT INFORMATION
  Report Type: Spontaneous
  Country: US (occurrence: US)
  Receive Date: 20190521
  Receipt Date: 20190521
  Transmission Date: 20190711
  Serious: No
  Sender: FDA-Public Use
  Company Number: US-TEVA-2019-US-1048349

PATIENT
  Sex: Female

DRUGS (1)
  1. PROAIR HFA [Suspect]
     Active Substance: ALBUTEROL SULFATE
     Dates: start: 20190426

REACTIONS (5)
  - Device issue [Unknown]
  - Productive cough [Unknown]
  - Wrong technique in product usage process [Unknown]
  - Malaise [Unknown]
  - Cough [Unknown]
